FAERS Safety Report 25784949 (Version 1)
Quarter: 2025Q3

REPORT INFORMATION
  Report Type: Spontaneous
  Country: US (occurrence: US)
  Receive Date: 20250910
  Receipt Date: 20250910
  Transmission Date: 20251021
  Serious: Yes (Other)
  Sender: PADAGIS
  Company Number: US-PADAGIS-2025PAD01065

PATIENT

DRUGS (3)
  1. CLOBETASOL PROPIONATE (EMMOLIENT) [Suspect]
     Active Substance: CLOBETASOL PROPIONATE
     Indication: Pyoderma gangrenosum
     Route: 065
  2. MYCOPHENOLIC ACID [Suspect]
     Active Substance: MYCOPHENOLIC ACID
     Indication: Pyoderma gangrenosum
     Route: 065
  3. PREDNISONE [Suspect]
     Active Substance: PREDNISONE
     Indication: Pyoderma gangrenosum
     Route: 065

REACTIONS (1)
  - Drug ineffective [Unknown]
